FAERS Safety Report 8080164-1 (Version None)
Quarter: 2012Q1

REPORT INFORMATION
  Report Type: 
  Country: None (occurrence: None)
  Receive Date: 20120130
  Receipt Date: 20120116
  Transmission Date: 20120608
  Serious: Yes (Hospitalization, Other)
  Sender: FDA-Public Use
  Company Number: PHEH2011US010405

PATIENT
  Sex: Female

DRUGS (5)
  1. EXJADE [Suspect]
     Dosage: 125 MG, UNK
  2. PANTOPRAZOLE [Concomitant]
     Dosage: 40 MG, UNK
     Route: 048
  3. POTASSIUM CHLORIDE [Concomitant]
     Dosage: 10 MEQ, QD
  4. PROCRIT [Concomitant]
  5. EXJADE [Suspect]
     Indication: IRON METABOLISM DISORDER
     Dosage: 1250 MG, QD
     Route: 048

REACTIONS (4)
  - LOWER LIMB FRACTURE [None]
  - FALL [None]
  - HIP FRACTURE [None]
  - FEMUR FRACTURE [None]
